FAERS Safety Report 5903293-4 (Version None)
Quarter: 2008Q3

REPORT INFORMATION
  Report Type: 
  Country: None (occurrence: None)
  Receive Date: 20080930
  Receipt Date: 20080924
  Transmission Date: 20090109
  Serious: Yes (Hospitalization)
  Sender: FDA-Public Use
  Company Number: A0749670A

PATIENT
  Age: 48 Year
  Sex: Male
  Weight: 113.6 kg

DRUGS (3)
  1. AUGMENTIN '125' [Suspect]
     Indication: SINUSITIS
     Dates: start: 20080805
  2. TOPAMAX [Suspect]
     Route: 048
     Dates: start: 20070101
  3. ENALAPRIL MALEATE [Concomitant]
     Dates: start: 20070101

REACTIONS (3)
  - CONVULSION [None]
  - DRUG INTERACTION [None]
  - THERAPEUTIC RESPONSE DECREASED [None]
